FAERS Safety Report 4517722-4 (Version None)
Quarter: 2004Q4

REPORT INFORMATION
  Report Type: 
  Country: None (occurrence: None)
  Receive Date: 20041203
  Receipt Date: 20030127
  Transmission Date: 20050328
  Serious: Yes (Death, Hospitalization)
  Sender: FDA-Public Use
  Company Number: PHRM2003FR00610

PATIENT
  Age: 73 Year
  Sex: Male

DRUGS (1)
  1. DESERNIL-SANDOZ [Suspect]
     Indication: ANGIOPATHY
     Dosage: AT LEAST 1.65 MG/DAY
     Route: 048
     Dates: start: 19920101, end: 20021029

REACTIONS (14)
  - ATHEROSCLEROSIS [None]
  - CARDIO-RESPIRATORY ARREST [None]
  - CYANOSIS [None]
  - DYSPNOEA [None]
  - EJECTION FRACTION DECREASED [None]
  - FACE OEDEMA [None]
  - JUGULAR VEIN DISTENSION [None]
  - LOCALISED OEDEMA [None]
  - MITRAL VALVE INCOMPETENCE [None]
  - MULTI-ORGAN FAILURE [None]
  - PERIPHERAL REVASCULARISATION [None]
  - RENAL IMPAIRMENT [None]
  - SUPERIOR VENA CAVAL OCCLUSION [None]
  - VASCULAR SHUNT [None]
